FAERS Safety Report 4343878-2 (Version None)
Quarter: 2004Q2

REPORT INFORMATION
  Report Type: 
  Country: None (occurrence: None)
  Receive Date: 20040419
  Receipt Date: 20040406
  Transmission Date: 20050107
  Serious: Yes (Hospitalization)
  Sender: FDA-Public Use
  Company Number: 200310644BFR

PATIENT
  Age: 52 Year
  Sex: Female

DRUGS (10)
  1. CIPROFLOXACIN [Suspect]
     Indication: SEPSIS
     Dosage: 800 MG, TOTAL DAILY, INTRAVENOUS
     Route: 042
     Dates: start: 20031105, end: 20031115
  2. VANCOMYCIN [Suspect]
     Indication: SEPSIS
     Dates: start: 20031105, end: 20031115
  3. FLUCONAZOLE [Suspect]
     Indication: SEPSIS
     Dosage: 200 MG, TOTAL DAILY, INTRAVENOUS
     Route: 042
     Dates: start: 20031105, end: 20031115
  4. TAZOCILLINE [Suspect]
     Indication: SEPSIS
     Dosage: 12 G, TOTAL DAILY, INTRAVENOUS
     Route: 042
     Dates: start: 20031105, end: 20031115
  5. LASIX [Concomitant]
  6. LEVOPHED [Concomitant]
  7. CISPLATIN [Concomitant]
  8. DOBUTREX [Concomitant]
  9. OMEPRAZOLE [Concomitant]
  10. TRIATEC [Concomitant]

REACTIONS (16)
  - ATRIAL FIBRILLATION [None]
  - BLOOD BICARBONATE INCREASED [None]
  - CARDIOGENIC SHOCK [None]
  - DIALYSIS [None]
  - HAEMATURIA [None]
  - HAEMODYNAMIC INSTABILITY [None]
  - HYPOKALAEMIA [None]
  - METABOLIC ALKALOSIS [None]
  - NEPHRITIS INTERSTITIAL [None]
  - PELVIC MASS [None]
  - PROTEINURIA [None]
  - RENAL FAILURE [None]
  - RENAL HYPERTROPHY [None]
  - RENAL TUBULAR DISORDER [None]
  - SEPTIC SHOCK [None]
  - SHOCK [None]
